FAERS Safety Report 25956693 (Version 1)
Quarter: 2025Q4

REPORT INFORMATION
  Report Type: Spontaneous
  Country: US (occurrence: US)
  Receive Date: 20251024
  Receipt Date: 20251024
  Transmission Date: 20260118
  Serious: No
  Sender: HISAMITSU PHARMACEUTICAL CO., INC.
  Company Number: US-HISAMITSU PHARMACEUTICAL CO., INC.-2025-NOV-US001193

PATIENT
  Age: 25 Year
  Weight: 62.585 kg

DRUGS (2)
  1. SECUADO [Suspect]
     Active Substance: ASENAPINE
     Indication: Bipolar I disorder
     Dosage: 3.8MG, UNKNOWN
     Route: 062
  2. SECUADO [Suspect]
     Active Substance: ASENAPINE
     Indication: Off label use

REACTIONS (6)
  - Application site irritation [Not Recovered/Not Resolved]
  - Application site erythema [Not Recovered/Not Resolved]
  - Application site pruritus [Not Recovered/Not Resolved]
  - Application site rash [Not Recovered/Not Resolved]
  - Maternal exposure during pregnancy [Not Recovered/Not Resolved]
  - Off label use [Not Recovered/Not Resolved]
